FAERS Safety Report 9866477 (Version 4)
Quarter: 2014Q3

REPORT INFORMATION
  Report Type: Spontaneous
  Country: US (occurrence: US)
  Receive Date: 20140204
  Receipt Date: 20140820
  Transmission Date: 20150326
  Serious: No
  Sender: FDA-Public Use
  Company Number: US-009507513-1401USA013132

PATIENT
  Age: 23 Year
  Sex: Female
  Weight: 87.98 kg

DRUGS (2)
  1. TOPIRAMATE. [Concomitant]
     Active Substance: TOPIRAMATE
     Dosage: 25 MG DAILY
  2. IMPLANON [Suspect]
     Active Substance: ETONOGESTREL
     Indication: CONTRACEPTION
     Dosage: 68 MG, EVERY 3 YEARS, 1 ROD
     Route: 059
     Dates: start: 20110616

REACTIONS (4)
  - Device dislocation [Not Recovered/Not Resolved]
  - Incorrect drug administration duration [Unknown]
  - Menstruation irregular [Unknown]
  - Medical device complication [Not Recovered/Not Resolved]

NARRATIVE: CASE EVENT DATE: 20140111
